FAERS Safety Report 6753514-3 (Version None)
Quarter: 2010Q2

REPORT INFORMATION
  Report Type: 
  Country: None (occurrence: None)
  Receive Date: 20100603
  Receipt Date: 20100527
  Transmission Date: 20101027
  Serious: Yes (Hospitalization, Other)
  Sender: FDA-Public Use
  Company Number: CN-SANOFI-AVENTIS-2009SA005208

PATIENT
  Age: 23 Year
  Sex: Male
  Weight: 75 kg

DRUGS (5)
  1. STUDY MEDICATION NOT GIVEN [Suspect]
     Indication: PULMONARY EMBOLISM
  2. ENOXAPARIN SODIUM [Suspect]
     Indication: PULMONARY EMBOLISM
     Route: 058
     Dates: start: 20091126, end: 20091126
  3. LEVOFLOXACIN [Concomitant]
     Indication: LUNG INFECTION
     Route: 065
     Dates: start: 20091119, end: 20091123
  4. CEFOPERAZONE SODIUM [Concomitant]
     Indication: LUNG INFECTION
     Dates: start: 20091119, end: 20091120
  5. PIPERACILLIN AND TAZOBACTAM [Concomitant]
     Indication: LUNG INFECTION
     Dates: start: 20091121, end: 20091126

REACTIONS (1)
  - THROMBOCYTOPENIA [None]
